FAERS Safety Report 10510112 (Version 1)
Quarter: 2014Q4

REPORT INFORMATION
  Report Type: Spontaneous
  Country: US (occurrence: US)
  Receive Date: 20141010
  Receipt Date: 20141010
  Transmission Date: 20150528
  Serious: No
  Sender: FDA-Public Use
  Company Number: US-009507513-1409USA013895

PATIENT
  Age: 21 Year
  Sex: Female
  Weight: 56.69 kg

DRUGS (1)
  1. NUVARING [Suspect]
     Active Substance: ETHINYL ESTRADIOL\ETONOGESTREL
     Indication: CONTRACEPTION
     Dosage: FREQUENCY: 1 RING /3WEEKS IN-1 WEEK OUT, QM
     Route: 067
     Dates: start: 201010, end: 201407

REACTIONS (4)
  - Loss of libido [Unknown]
  - Menstruation delayed [Unknown]
  - Dysmenorrhoea [Unknown]
  - Headache [Unknown]

NARRATIVE: CASE EVENT DATE: 201010
